FAERS Safety Report 5511623-0 (Version None)
Quarter: 2007Q4

REPORT INFORMATION
  Report Type: 
  Country: None (occurrence: None)
  Receive Date: 20071109
  Receipt Date: 20071030
  Transmission Date: 20080405
  Serious: Yes (Hospitalization, Other)
  Sender: FDA-Public Use
  Company Number: US-PFIZER INC-2007091322

PATIENT
  Sex: Male

DRUGS (3)
  1. LIPITOR [Suspect]
  2. PRAVACHOL [Suspect]
  3. STATINS [Suspect]

REACTIONS (6)
  - CATHETERISATION CARDIAC [None]
  - LOW DENSITY LIPOPROTEIN ABNORMAL [None]
  - MYALGIA [None]
  - MYOPATHY [None]
  - RESPIRATORY DISORDER [None]
  - STENT PLACEMENT [None]
